FAERS Safety Report 6115576-6 (Version None)
Quarter: 2009Q1

REPORT INFORMATION
  Report Type: 
  Country: None (occurrence: None)
  Receive Date: 20090313
  Receipt Date: 20090303
  Transmission Date: 20090719
  Serious: Yes (Hospitalization)
  Sender: FDA-Public Use
  Company Number: IE-ROCHE-618482

PATIENT
  Sex: Female

DRUGS (1)
  1. MIRCERA [Suspect]
     Dosage: FREQUENCY: ALTERNTE WEEKS, LAST INJECTION 12 FEBRUARY 2009
     Route: 058

REACTIONS (2)
  - INJECTION SITE HAEMATOMA [None]
  - PNEUMONIA [None]
